FAERS Safety Report 6060237-5 (Version None)
Quarter: 2009Q1

REPORT INFORMATION
  Report Type: 
  Country: None (occurrence: None)
  Receive Date: 20090129
  Receipt Date: 20090116
  Transmission Date: 20090719
  Serious: Yes (Other)
  Sender: FDA-Public Use
  Company Number: 2009000184

PATIENT
  Age: 74 Year
  Sex: Male

DRUGS (4)
  1. TARCEVA [Suspect]
     Indication: NON-SMALL CELL LUNG CANCER
     Dosage: 150 MG, QD, ORAL
     Route: 048
     Dates: start: 20081023
  2. THYMOPENTIN (THYMOPENTIN) [Concomitant]
  3. XIHUANG WAN (CHINESE MEDICINE) [Concomitant]
  4. YUNNAN BAIYAO [Concomitant]

REACTIONS (5)
  - DRUG INEFFECTIVE [None]
  - HAEMOPTYSIS [None]
  - HEPATIC NEOPLASM [None]
  - MALIGNANT NEOPLASM PROGRESSION [None]
  - PYREXIA [None]
